FAERS Safety Report 20047620 (Version 2)
Quarter: 2021Q4

REPORT INFORMATION
  Report Type: Spontaneous
  Country: IN (occurrence: IN)
  Receive Date: 20211109
  Receipt Date: 20211123
  Transmission Date: 20220303
  Serious: Yes (Life-Threatening)
  Sender: FDA-Public Use
  Company Number: IN-TORRENT-00002948

PATIENT
  Age: 23 Year
  Sex: Male

DRUGS (11)
  1. ESOMEPRAZOLE [Suspect]
     Active Substance: ESOMEPRAZOLE
     Indication: Product used for unknown indication
     Dosage: BD (TWICE A DAY)
     Route: 042
     Dates: start: 20211018
  2. akilos p [Concomitant]
     Indication: Pain
     Dosage: UNKNOWN, IF PAIN
  3. DOLO [Concomitant]
     Indication: Pyrexia
     Dosage: UNKNOWN, IF FEVER
  4. ONDANSETRON HYDROCHLORIDE [Concomitant]
     Active Substance: ONDANSETRON HYDROCHLORIDE
     Indication: Product used for unknown indication
     Dosage: AS NEEDED (SOS)
     Route: 042
  5. METRONIDAZOLE [Concomitant]
     Active Substance: METRONIDAZOLE
     Indication: Product used for unknown indication
     Dosage: 3 TIMES A DAY (TDS)
  6. METOCLOPRAMIDE HYDROCHLORIDE [Concomitant]
     Active Substance: METOCLOPRAMIDE HYDROCHLORIDE
     Indication: Product used for unknown indication
     Dosage: TWICE A DAY (BD), STAT
     Route: 042
  7. Zostum 1.5 mg [Concomitant]
     Indication: Product used for unknown indication
     Dosage: BD (TWICE A DAY)
     Route: 042
  8. DNS/RL [Concomitant]
     Indication: Product used for unknown indication
     Route: 042
  9. TRAMADOL HYDROCHLORIDE [Concomitant]
     Active Substance: TRAMADOL HYDROCHLORIDE
     Indication: Product used for unknown indication
     Dosage: 100 MG TDS
     Route: 042
  10. Dynapar [Concomitant]
     Indication: Product used for unknown indication
     Dosage: SOS
  11. MINERALS\VITAMINS [Concomitant]
     Active Substance: MINERALS\VITAMINS
     Indication: Product used for unknown indication
     Dosage: 11-0-11

REACTIONS (1)
  - Hypoglycaemia [Recovering/Resolving]

NARRATIVE: CASE EVENT DATE: 20211019
